FAERS Safety Report 6045008-8 (Version None)
Quarter: 2009Q1

REPORT INFORMATION
  Report Type: 
  Country: None (occurrence: None)
  Receive Date: 20090116
  Receipt Date: 20090116
  Transmission Date: 20090719
  Serious: No
  Sender: FDA-Public Use
  Company Number: None

PATIENT
  Sex: Male
  Weight: 12.2018 kg

DRUGS (2)
  1. ALBUTEROL 2.5 MG [Suspect]
     Indication: BRONCHIAL HYPERREACTIVITY
     Dosage: 2.5 MG QID PEN NEBULIZER
     Dates: start: 20081210
  2. ALBUTEROL 2.5 MG [Suspect]
     Indication: BRONCHIAL HYPERREACTIVITY
     Dosage: 2.5 MG QID PEN NEBULIZER
     Dates: start: 20090106

REACTIONS (5)
  - COUGH [None]
  - DYSPNOEA [None]
  - HEART RATE ABNORMAL [None]
  - PALPITATIONS [None]
  - RASH [None]
